FAERS Safety Report 6180445-2 (Version None)
Quarter: 2009Q2

REPORT INFORMATION
  Report Type: 
  Country: None (occurrence: None)
  Receive Date: 20090417
  Receipt Date: 20090403
  Transmission Date: 20091009
  Serious: Yes (Other)
  Sender: FDA-Public Use
  Company Number: THYM-1000866

PATIENT
  Age: 57 Year
  Sex: Female
  Weight: 97.3 kg

DRUGS (13)
  1. THYMOGLOBULIN [Suspect]
     Indication: RENAL TRANSPLANT
     Dosage: 150 MG, INTRAVENOUS
     Route: 042
     Dates: start: 20081125, end: 20081129
  2. SOLU-MEDROL [Concomitant]
  3. ACETAMINOPHEN [Concomitant]
  4. BENADRYL [Concomitant]
  5. SINGULAIR [Concomitant]
  6. PEPCID [Concomitant]
  7. CEFAZOLIN [Concomitant]
  8. CELLCEPT [Concomitant]
  9. NEXIUM [Concomitant]
  10. ASPIRIN [Concomitant]
  11. MULTI VITAMIN CONCENTRATE (MULTI VITAMIN CONCENTRATE) [Concomitant]
  12. SODIUM CHLORIDE [Concomitant]
  13. PROGRAF [Concomitant]

REACTIONS (7)
  - CAPILLARY LEAK SYNDROME [None]
  - COMPLICATIONS OF TRANSPLANTED KIDNEY [None]
  - FLUID OVERLOAD [None]
  - HYPOTENSION [None]
  - LEUKOPENIA [None]
  - PULMONARY OEDEMA [None]
  - PYREXIA [None]
